FAERS Safety Report 11852510 (Version 1)
Quarter: 2015Q4

REPORT INFORMATION
  Report Type: Spontaneous
  Country: GB (occurrence: GB)
  Receive Date: 20151218
  Receipt Date: 20151218
  Transmission Date: 20160305
  Serious: Yes (Life-Threatening)
  Sender: FDA-Public Use
  Company Number: GB-ELI_LILLY_AND_COMPANY-GB201512004583

PATIENT
  Age: 40 Year
  Sex: Female
  Weight: 62 kg

DRUGS (4)
  1. COD LIVER OIL [Concomitant]
     Active Substance: COD LIVER OIL
     Dosage: UNK UNK, UNKNOWN
     Route: 065
  2. OLANZAPINE. [Suspect]
     Active Substance: OLANZAPINE
     Indication: STRESS
     Dosage: UNK UNK, UNKNOWN
     Route: 048
     Dates: start: 20120521, end: 20120531
  3. TURMERIC                           /01079602/ [Concomitant]
     Dosage: UNK UNK, UNKNOWN
     Route: 065
  4. OMEGA 3                            /01333901/ [Concomitant]
     Active Substance: FISH OIL\TOCOPHEROL
     Dosage: UNK UNK, UNKNOWN
     Route: 065

REACTIONS (6)
  - Amnesia [Not Recovered/Not Resolved]
  - Off label use [Unknown]
  - Apathy [Not Recovered/Not Resolved]
  - Emotional poverty [Not Recovered/Not Resolved]
  - Insomnia [Not Recovered/Not Resolved]
  - Decreased appetite [Not Recovered/Not Resolved]

NARRATIVE: CASE EVENT DATE: 20120521
